FAERS Safety Report 22659326 (Version 1)
Quarter: 2023Q2

REPORT INFORMATION
  Report Type: Spontaneous
  Country: US (occurrence: US)
  Receive Date: 20230630
  Receipt Date: 20230630
  Transmission Date: 20230722
  Serious: No
  Sender: FDA-Public Use
  Company Number: US-BRISTOL-MYERS SQUIBB COMPANY-2023-091045

PATIENT
  Age: 50 Year
  Sex: Male
  Weight: 89.36 kg

DRUGS (1)
  1. THALOMID [Suspect]
     Active Substance: THALIDOMIDE
     Indication: Erythema nodosum
     Dosage: DAILY ON DAYS 1-28 OF 28 DAY CYCLE
     Route: 048
     Dates: start: 20200701

REACTIONS (1)
  - Adverse event [Not Recovered/Not Resolved]
